FAERS Safety Report 5075164-X (Version None)
Quarter: 2006Q3

REPORT INFORMATION
  Report Type: 
  Country: None (occurrence: None)
  Receive Date: 20060714
  Receipt Date: 20060511
  Transmission Date: 20061208
  Serious: No
  Sender: FDA-Public Use
  Company Number: 2006SP002019

PATIENT
  Age: 58 Year
  Sex: Female
  Weight: 67.1324 kg

DRUGS (6)
  1. LUNESTA [Suspect]
     Indication: INSOMNIA
     Dosage: 1 MG;HS;ORAL
     Route: 048
     Dates: start: 20060101
  2. LEVOXYL [Concomitant]
  3. GLUCOSAMINE [Concomitant]
  4. CALCIUM GLUCONATE [Concomitant]
  5. FLAXSEED OIL [Concomitant]
  6. HORMONES AND RELATED AGENTS [Concomitant]

REACTIONS (1)
  - DYSGEUSIA [None]
